FAERS Safety Report 8896388 (Version 1)
Quarter: 2012Q4

REPORT INFORMATION
  Report Type: Spontaneous
  Country: GB (occurrence: None)
  Receive Date: 20121102
  Receipt Date: 20121102
  Transmission Date: 20130627
  Serious: Yes (Other)
  Sender: FDA-Public Use
  Company Number: 1475751

PATIENT
  Age: 61 Year
  Sex: Female

DRUGS (2)
  1. PAMIDRONIC ACID [Suspect]
     Indication: SPINAL FUSION SURGERY
     Route: 042
  2. PAMIDRONIC ACID [Suspect]
     Indication: SURGICAL FAILURE
     Route: 042

REACTIONS (1)
  - Femur fracture [None]
